FAERS Safety Report 7456220-5 (Version None)
Quarter: 2011Q2

REPORT INFORMATION
  Report Type: 
  Country: None (occurrence: None)
  Receive Date: 20110503
  Receipt Date: 20110318
  Transmission Date: 20111010
  Serious: Yes (Life-Threatening, Hospitalization, Other)
  Sender: FDA-Public Use
  Company Number: BR-ASTRAZENECA-2011SE24997

PATIENT
  Age: 70 Year
  Sex: Female

DRUGS (27)
  1. CANDESARTAN [Suspect]
     Indication: HYPERTENSION
     Route: 048
     Dates: start: 20091101, end: 20090101
  2. METOPROLOL SUCCINATE [Suspect]
     Route: 048
     Dates: start: 20090801, end: 20091101
  3. METOPROLOL SUCCINATE [Suspect]
     Route: 048
  4. UNKNOWN LOOP DIURETIC [Concomitant]
     Indication: HYPERTENSION
  5. METOPROLOL SUCCINATE [Suspect]
     Route: 048
     Dates: start: 20090801, end: 20091101
  6. METOPROLOL SUCCINATE [Suspect]
     Route: 048
     Dates: end: 20091101
  7. OMEPRAZOLE [Suspect]
     Indication: HIATUS HERNIA
     Route: 048
  8. ROSUVASTATIN CALCIUM [Suspect]
     Route: 048
     Dates: start: 20090801
  9. ROSUVASTATIN CALCIUM [Suspect]
     Route: 048
     Dates: start: 20090801
  10. ASPIRIN [Suspect]
     Route: 048
     Dates: start: 20090801
  11. ASPIRIN [Suspect]
     Route: 048
     Dates: start: 20090801
  12. METOPROLOL SUCCINATE [Suspect]
     Route: 048
     Dates: start: 20091101
  13. ROSUVASTATIN CALCIUM [Suspect]
     Indication: PROPHYLAXIS
     Route: 048
     Dates: start: 20090101, end: 20090801
  14. UNKNOWN NITRATE [Concomitant]
     Indication: ANGINA PECTORIS
     Dosage: PRN
     Dates: start: 20090701
  15. TELMISARTAN [Suspect]
     Route: 048
     Dates: start: 20090801, end: 20091101
  16. ASPIRIN [Suspect]
     Indication: PROPHYLAXIS
     Route: 048
     Dates: start: 20090701, end: 20090801
  17. CANDESARTAN [Suspect]
     Route: 048
  18. ROSUVASTATIN CALCIUM [Suspect]
     Indication: ARTERIOSCLEROSIS
     Route: 048
     Dates: start: 20090101, end: 20090801
  19. METOPROLOL SUCCINATE [Suspect]
     Indication: HYPERTENSION
     Route: 048
     Dates: start: 20090701, end: 20090801
  20. METOPROLOL SUCCINATE [Suspect]
     Indication: CARDIAC FAILURE
     Route: 048
     Dates: start: 20090701, end: 20090801
  21. ENALAPRIL [Suspect]
     Indication: HYPERTENSION
     Route: 048
     Dates: end: 20000101
  22. ASPIRIN [Suspect]
     Indication: ARTERIOSCLEROSIS
     Route: 048
     Dates: start: 20090701, end: 20090801
  23. METOPROLOL SUCCINATE [Suspect]
     Route: 048
     Dates: end: 20091101
  24. METOPROLOL SUCCINATE [Suspect]
     Route: 048
  25. OMEPRAZOLE [Suspect]
     Indication: GASTROOESOPHAGEAL REFLUX DISEASE
     Route: 048
  26. TELMISARTAN [Suspect]
     Indication: HYPERTENSION
     Route: 048
     Dates: start: 20000101, end: 20090801
  27. METOPROLOL SUCCINATE [Suspect]
     Route: 048
     Dates: start: 20091101

REACTIONS (12)
  - CHRONIC SINUSITIS [None]
  - COUGH [None]
  - FATIGUE [None]
  - LOW CARDIAC OUTPUT SYNDROME [None]
  - LEFT VENTRICULAR HYPERTROPHY [None]
  - CARDIAC STRESS TEST ABNORMAL [None]
  - ARTERIOSCLEROSIS CORONARY ARTERY [None]
  - ANGINA PECTORIS [None]
  - HEART RATE DECREASED [None]
  - BLOOD PRESSURE INADEQUATELY CONTROLLED [None]
  - AORTIC ARTERIOSCLEROSIS [None]
  - PULMONARY EMBOLISM [None]
